FAERS Safety Report 7083931 (Version 4)
Quarter: 2015Q1

REPORT INFORMATION
  Report Type: Spontaneous
  Country: GR (occurrence: None)
  Receive Date: 20090810
  Receipt Date: 20150309
  Transmission Date: 20150721
  Serious: Yes (Hospitalization)
  Sender: FDA-Public Use
  Company Number: 2009002251

PATIENT
  Age: 59 Year
  Sex: Female

DRUGS (10)
  1. ARANESP [Concomitant]
     Active Substance: DARBEPOETIN ALFA
  2. TAXOTERE [Suspect]
     Active Substance: DOCETAXEL
     Indication: LUNG NEOPLASM MALIGNANT
     Dosage: 150 MG/KG, EVERY 3 WEEKS
     Route: 042
     Dates: start: 20090626
  3. ESMOLOL [Concomitant]
     Active Substance: ESMOLOL HYDROCHLORIDE
  4. GRANULOKINE [Concomitant]
     Active Substance: FILGRASTIM
  5. OMEPRAZOLE. [Concomitant]
     Active Substance: OMEPRAZOLE
  6. ASPIRIN (ACETYLSALICYLIC ACID) [Concomitant]
     Active Substance: ASPIRIN
  7. TARCEVA [Suspect]
     Active Substance: ERLOTINIB HYDROCHLORIDE
     Indication: LUNG NEOPLASM MALIGNANT
     Dosage: (150 MG,QD),ORAL
     Route: 048
     Dates: start: 20090629, end: 20090712
  8. DILATREND (CARVEDILOL) [Concomitant]
  9. BROMAZEPAM (BROMAZEPAM) [Concomitant]
     Active Substance: BROMAZEPAM
  10. VALSARTAN. [Concomitant]
     Active Substance: VALSARTAN

REACTIONS (6)
  - Anaemia [None]
  - Leukopenia [None]
  - Pericardial effusion [None]
  - Palpitations [None]
  - Atrial fibrillation [None]
  - Febrile neutropenia [None]

NARRATIVE: CASE EVENT DATE: 20090705
